FAERS Safety Report 4947607-0 (Version None)
Quarter: 2006Q1

REPORT INFORMATION
  Report Type: 
  Country: None (occurrence: None)
  Receive Date: 20060314
  Receipt Date: 20060301
  Transmission Date: 20060701
  Serious: Yes (Other)
  Sender: FDA-Public Use
  Company Number: 2006030568

PATIENT

DRUGS (1)
  1. CLINDAMYCIN PHOSPHATE [Suspect]
     Indication: ILL-DEFINED DISORDER
     Dosage: INTRAVENOUS
     Route: 042

REACTIONS (1)
  - DEAFNESS [None]
